FAERS Safety Report 8436165-4 (Version None)
Quarter: 2012Q2

REPORT INFORMATION
  Report Type: 
  Country: None (occurrence: None)
  Receive Date: 20120614
  Receipt Date: 20120612
  Transmission Date: 20120825
  Serious: Yes (Disabling)
  Sender: FDA-Public Use
  Company Number: IT-PFIZER INC-2012105565

PATIENT
  Age: 68 Year
  Sex: Male

DRUGS (10)
  1. LASIX [Concomitant]
     Dosage: UNK
     Route: 042
     Dates: start: 20120223, end: 20120226
  2. IDARUBICIN HYDROCHLORIDE [Suspect]
     Indication: ACUTE MYELOID LEUKAEMIA
     Dosage: 24 MG, CYCLIC
     Route: 042
     Dates: start: 20120224, end: 20120228
  3. CYTARABINE [Suspect]
     Indication: ACUTE MYELOID LEUKAEMIA
     Dosage: 200 MG, DAILY
     Route: 042
     Dates: start: 20120224, end: 20120301
  4. NORMASE [Concomitant]
     Dosage: UNK
     Route: 048
     Dates: start: 20120225, end: 20120227
  5. ALLOPURINOL [Concomitant]
     Dosage: 600 MG, UNK
     Route: 048
     Dates: start: 20120224, end: 20120224
  6. ZOFRAN [Concomitant]
     Dosage: UNK
     Route: 042
     Dates: start: 20120223, end: 20120301
  7. ALLOPURINOL [Concomitant]
     Dosage: 300 MG, DAILY
     Route: 048
     Dates: start: 20120220, end: 20120223
  8. LEVOFLOXACIN [Concomitant]
     Dosage: 500 MG, UNK
     Route: 048
     Dates: start: 20120223, end: 20120227
  9. MYCOSTATIN [Concomitant]
     Dosage: UNK
     Route: 061
     Dates: start: 20120223, end: 20120227
  10. ALLOPURINOL [Concomitant]
     Dosage: 300 MG, DAILY
     Route: 048
     Dates: start: 20120225, end: 20120226

REACTIONS (6)
  - SINUS TACHYCARDIA [None]
  - RESPIRATORY FAILURE [None]
  - RENAL FAILURE [None]
  - TUMOUR LYSIS SYNDROME [None]
  - FEBRILE BONE MARROW APLASIA [None]
  - HAEMATURIA [None]
